APPROVED DRUG PRODUCT: ARISTOCORT
Active Ingredient: TRIAMCINOLONE DIACETATE
Strength: 40MG/ML **Federal Register determination that product was not discontinued or withdrawn for safety or effectiveness reasons**
Dosage Form/Route: INJECTABLE;INJECTION
Application: N012802 | Product #001
Applicant: FOSUN PHARMA USA INC
Approved: Approved Prior to Jan 1, 1982 | RLD: Yes | RS: No | Type: DISCN